FAERS Safety Report 5321373-1 (Version None)
Quarter: 2007Q2

REPORT INFORMATION
  Report Type: 
  Country: None (occurrence: None)
  Receive Date: 20070507
  Receipt Date: 20070507
  Transmission Date: 20071010
  Serious: Yes (Hospitalization)
  Sender: FDA-Public Use
  Company Number: None

PATIENT
  Age: 80 Year
  Sex: Male

DRUGS (1)
  1. EPOETIN ALFA, RECOMBINANT [Suspect]
     Indication: ANAEMIA
     Dosage: 40,000UNITS QWEEK SQ
     Route: 058
     Dates: start: 20060131, end: 20070117

REACTIONS (4)
  - HAEMOGLOBIN INCREASED [None]
  - HEADACHE [None]
  - HYPERTENSION [None]
  - MEDICATION ERROR [None]
